FAERS Safety Report 5220407-2 (Version None)
Quarter: 2007Q1

REPORT INFORMATION
  Report Type: 
  Country: None (occurrence: None)
  Receive Date: 20070125
  Receipt Date: 20070115
  Transmission Date: 20070707
  Serious: Yes (Death, Other)
  Sender: FDA-Public Use
  Company Number: DE-ABBOTT-07P-062-0355683-00

PATIENT
  Sex: Male
  Weight: 49 kg

DRUGS (4)
  1. KALETRA [Suspect]
     Indication: HIV INFECTION
     Dosage: 200/50
     Route: 048
     Dates: start: 20050726, end: 20061121
  2. KIVEXA 700/30 [Concomitant]
     Indication: HIV INFECTION
     Route: 048
     Dates: start: 20050727, end: 20061121
  3. MORPHINE 100 TABLETS [Concomitant]
     Indication: PAIN
     Route: 048
     Dates: start: 20060721, end: 20061121
  4. COTRIM DS [Concomitant]
     Indication: ANTIFUNGAL PROPHYLAXIS
     Route: 048
     Dates: start: 20060223, end: 20061121

REACTIONS (5)
  - BRONCHIAL CARCINOMA [None]
  - CACHEXIA [None]
  - GENERAL PHYSICAL HEALTH DETERIORATION [None]
  - METASTASES TO CENTRAL NERVOUS SYSTEM [None]
  - SOMNOLENCE [None]
